FAERS Safety Report 25671247 (Version 1)
Quarter: 2025Q3

REPORT INFORMATION
  Report Type: Spontaneous
  Country: US (occurrence: None)
  Receive Date: 20250811
  Receipt Date: 20250811
  Transmission Date: 20251021
  Serious: No
  Sender: FDA-CTU
  Company Number: None

PATIENT
  Age: 79 Year
  Sex: Female
  Weight: 67.59 kg

DRUGS (17)
  1. PARODONTAX [Suspect]
     Active Substance: STANNOUS FLUORIDE
     Dosage: FREQUENCY : TWICE A DAY;?
     Dates: start: 20250613, end: 20250613
  2. LEVOTHYROXINE [Concomitant]
     Active Substance: LEVOTHYROXINE
  3. AMLODIPINE [Concomitant]
     Active Substance: AMLODIPINE BESYLATE
  4. METOPROLOL [Concomitant]
     Active Substance: METOPROLOL
  5. Maxside [Concomitant]
  6. PRIMIDONE [Concomitant]
     Active Substance: PRIMIDONE
  7. PRAVASTATIN [Concomitant]
     Active Substance: PRAVASTATIN
  8. ALLOPURINOL [Concomitant]
     Active Substance: ALLOPURINOL
  9. ASPIRIN [Concomitant]
     Active Substance: ASPIRIN
  10. LOSARTAN [Concomitant]
     Active Substance: LOSARTAN
  11. EXEMESTANE [Concomitant]
     Active Substance: EXEMESTANE
  12. CLONAZEPAM [Concomitant]
     Active Substance: CLONAZEPAM
  13. EPIPEN [Concomitant]
     Active Substance: EPINEPHRINE
  14. TYLENOL [Concomitant]
     Active Substance: ACETAMINOPHEN
  15. GAS-X [Concomitant]
     Active Substance: DIMETHICONE
  16. CALCIUM\VITAMIN D [Concomitant]
     Active Substance: CALCIUM\VITAMIN D
  17. Meta-Mucil [Concomitant]

REACTIONS (7)
  - Dyspnoea [None]
  - Pharyngeal swelling [None]
  - Uvulitis [None]
  - Hypersensitivity [None]
  - Palatal disorder [None]
  - Swelling [None]
  - Physical product label issue [None]
